FAERS Safety Report 6550510-6 (Version None)
Quarter: 2010Q1

REPORT INFORMATION
  Report Type: 
  Country: None (occurrence: None)
  Receive Date: 20100125
  Receipt Date: 20100122
  Transmission Date: 20100710
  Serious: No
  Sender: FDA-Public Use
  Company Number: B0614850A

PATIENT
  Sex: Female

DRUGS (2)
  1. ALLERMIST [Suspect]
     Indication: ASTHMA
     Route: 045
  2. ALVESCO [Concomitant]
     Route: 055

REACTIONS (1)
  - NAUSEA [None]
